FAERS Safety Report 13648888 (Version 1)
Quarter: 2017Q2

REPORT INFORMATION
  Report Type: Spontaneous
  Country: US (occurrence: US)
  Receive Date: 20170613
  Receipt Date: 20170613
  Transmission Date: 20170830
  Serious: Yes (Death, Other)
  Sender: FDA-Public Use
  Company Number: US-MYLANLABS-2017M1035605

PATIENT

DRUGS (15)
  1. PHENYLEPHRINE [Concomitant]
     Active Substance: PHENYLEPHRINE\PHENYLEPHRINE HYDROCHLORIDE
     Indication: HYPOTENSION
     Route: 065
  2. WARFARIN [Concomitant]
     Active Substance: WARFARIN
     Indication: ANTICOAGULANT THERAPY
     Route: 065
  3. CLOPIDOGREL [Concomitant]
     Active Substance: CLOPIDOGREL BISULFATE
     Indication: PRODUCT USED FOR UNKNOWN INDICATION
     Dosage: 750MG
     Route: 065
  4. EPINEPHRINE. [Suspect]
     Active Substance: EPINEPHRINE
     Dosage: 1MG
     Route: 040
  5. NITROGLYCERIN. [Concomitant]
     Active Substance: NITROGLYCERIN
     Indication: HYPERTENSION
     Route: 050
  6. MIDAZOLAM [Concomitant]
     Active Substance: MIDAZOLAM HYDROCHLORIDE
     Indication: ANXIETY
     Dosage: 1MG
     Route: 042
  7. EPINEPHRINE. [Suspect]
     Active Substance: EPINEPHRINE
     Dosage: 6MCG/MIN
     Route: 050
  8. VASOPRESSIN. [Concomitant]
     Active Substance: VASOPRESSIN
     Indication: PRODUCT USED FOR UNKNOWN INDICATION
     Dosage: 0.04 UNITS/MINUTE
     Route: 050
  9. ESMOLOL [Concomitant]
     Active Substance: ESMOLOL HYDROCHLORIDE
     Indication: PRODUCT USED FOR UNKNOWN INDICATION
     Dosage: 10MG
     Route: 042
  10. EPINEPHRINE. [Suspect]
     Active Substance: EPINEPHRINE
     Dosage: 100MICROG-200MICROG
     Route: 050
  11. EPHEDRINE. [Concomitant]
     Active Substance: EPHEDRINE
     Indication: HYPOTENSION
     Route: 065
  12. ACETYLSALICYLIC ACID [Concomitant]
     Active Substance: ASPIRIN
     Indication: PRODUCT USED FOR UNKNOWN INDICATION
     Dosage: 325MG
     Route: 065
  13. EPINEPHRINE. [Suspect]
     Active Substance: EPINEPHRINE
     Indication: HYPOTENSION
     Dosage: 4MCG
     Route: 040
  14. EPINEPHRINE. [Suspect]
     Active Substance: EPINEPHRINE
     Dosage: 1MG ADMINISTERED AT 1 AND 3 MINUTES
     Route: 040
  15. HEPARIN [Concomitant]
     Active Substance: HEPARIN SODIUM
     Indication: PRODUCT USED FOR UNKNOWN INDICATION
     Dosage: 5,000IU
     Route: 042

REACTIONS (3)
  - Stress cardiomyopathy [Fatal]
  - Ventricular fibrillation [Fatal]
  - Cardiac arrest [Fatal]
